FAERS Safety Report 4874389-3 (Version None)
Quarter: 2006Q1

REPORT INFORMATION
  Report Type: 
  Country: None (occurrence: None)
  Receive Date: 20060104
  Receipt Date: 20040921
  Transmission Date: 20060701
  Serious: Yes (Other)
  Sender: FDA-Public Use
  Company Number: 2004068650

PATIENT
  Age: 63 Year
  Sex: Male

DRUGS (1)
  1. VIAGRA [Suspect]
     Indication: ILL-DEFINED DISORDER
     Dosage: ORAL
     Route: 048
     Dates: start: 20030101

REACTIONS (15)
  - CATARACT NUCLEAR [None]
  - CORNEAL EPITHELIUM DISORDER [None]
  - EYE IRRITATION [None]
  - IRIS TRANSILLUMINATION DEFECT [None]
  - LACRIMATION DECREASED [None]
  - OCULAR HYPERTENSION [None]
  - OPTIC DISC DISORDER [None]
  - OPTIC DISC VASCULAR DISORDER [None]
  - OPTIC ISCHAEMIC NEUROPATHY [None]
  - PAPILLOEDEMA [None]
  - PIGMENT DISPERSION SYNDROME [None]
  - PROCEDURAL COMPLICATION [None]
  - RETINOPATHY HYPERTENSIVE [None]
  - VISUAL FIELD DEFECT [None]
  - VITREOUS DETACHMENT [None]
